FAERS Safety Report 20688794 (Version 2)
Quarter: 2022Q2

REPORT INFORMATION
  Report Type: Spontaneous
  Country: JP (occurrence: JP)
  Receive Date: 20220408
  Receipt Date: 20220426
  Transmission Date: 20220720
  Serious: Yes (Other)
  Sender: FDA-Public Use
  Company Number: JP-NOVARTISPH-NVSJ2022JP005906

PATIENT
  Sex: Male

DRUGS (3)
  1. TASIGNA [Suspect]
     Active Substance: NILOTINIB
     Indication: Chronic myeloid leukaemia
     Dosage: UNK
     Route: 048
     Dates: start: 201804
  2. DASATINIB [Concomitant]
     Active Substance: DASATINIB
     Indication: Product used for unknown indication
     Dosage: UNK
     Route: 065
  3. PONATINIB [Concomitant]
     Active Substance: PONATINIB
     Indication: Product used for unknown indication
     Dosage: UNK
     Route: 065

REACTIONS (2)
  - Electrocardiogram QT prolonged [Recovered/Resolved]
  - Therapeutic product effect incomplete [Recovered/Resolved]

NARRATIVE: CASE EVENT DATE: 20220401
